FAERS Safety Report 15693262 (Version 1)
Quarter: 2018Q4

REPORT INFORMATION
  Report Type: Spontaneous
  Country: CH (occurrence: CH)
  Receive Date: 20181206
  Receipt Date: 20181206
  Transmission Date: 20190205
  Serious: Yes (Hospitalization, Other)
  Sender: FDA-Public Use
  Company Number: CH-TEVA-2018-CH-983183

PATIENT
  Age: 49 Year
  Sex: Female

DRUGS (6)
  1. DAFALGAN [Suspect]
     Active Substance: ACETAMINOPHEN
     Indication: ANALGESIC THERAPY
     Dosage: AS NECESSARY FOR PAIN IN THE HIPS
     Route: 048
     Dates: end: 20181016
  2. SUTENT [Suspect]
     Active Substance: SUNITINIB MALATE
     Indication: METASTATIC RENAL CELL CARCINOMA
     Dosage: 50 MILLIGRAM DAILY;
     Route: 048
     Dates: start: 20180912, end: 20180926
  3. IRFEN [Suspect]
     Active Substance: IBUPROFEN
     Dosage: AS NECESSARY
     Route: 048
     Dates: end: 20181016
  4. XARELTO [Suspect]
     Active Substance: RIVAROXABAN
     Indication: THROMBOSIS PROPHYLAXIS
     Dosage: 10 MILLIGRAM DAILY;
     Route: 048
     Dates: start: 20180823, end: 20181016
  5. SUTENT [Suspect]
     Active Substance: SUNITINIB MALATE
     Dosage: 50 MILLIGRAM DAILY;
     Route: 048
     Dates: start: 20181009, end: 20181016
  6. PANTOPRAZOL [Concomitant]
     Active Substance: PANTOPRAZOLE SODIUM
     Indication: PROPHYLAXIS AGAINST GASTROINTESTINAL ULCER
     Dosage: 40 MILLIGRAM DAILY; GASTRIC PROTECTION FOR TREATMENT WITH IBUPROFEN AND FOR HEARTBURN
     Route: 048
     Dates: end: 20181016

REACTIONS (2)
  - Immune thrombocytopenic purpura [Recovered/Resolved]
  - Hepatic enzyme increased [Recovered/Resolved]

NARRATIVE: CASE EVENT DATE: 20181016
